FAERS Safety Report 8688771 (Version 3)
Quarter: 2013Q4

REPORT INFORMATION
  Report Type: Spontaneous
  Country: US (occurrence: US)
  Receive Date: 20120727
  Receipt Date: 20131031
  Transmission Date: 20140711
  Serious: Yes (Hospitalization, Other)
  Sender: FDA-Public Use
  Company Number: US-009507513-1207USA010282

PATIENT
  Age: 74 Year
  Sex: Female

DRUGS (8)
  1. JANUVIA [Suspect]
     Dosage: 100 MG, UNK
     Route: 048
  2. METGLUCO [Suspect]
     Dosage: 500 MG, UNK
     Route: 048
  3. AMARYL [Concomitant]
     Dosage: UNK
     Route: 048
     Dates: start: 20110724, end: 20120404
  4. AMARYL [Concomitant]
     Dosage: UNK
     Dates: start: 20120409
  5. BAYASPIRIN [Concomitant]
     Dosage: UNK
     Route: 048
     Dates: start: 2004, end: 20120404
  6. BAYASPIRIN [Concomitant]
     Dosage: UNK
     Route: 048
     Dates: start: 20120409
  7. AMLODIPINE [Concomitant]
     Dosage: UNK
     Route: 048
     Dates: start: 2004, end: 20120404
  8. AMLODIPINE [Concomitant]
     Dosage: UNK
     Route: 048
     Dates: start: 20120409

REACTIONS (4)
  - Hepatic function abnormal [Unknown]
  - Jaundice [Unknown]
  - Alanine aminotransferase increased [Unknown]
  - Aspartate aminotransferase increased [Unknown]
